FAERS Safety Report 9542352 (Version 3)
Quarter: 2013Q4

REPORT INFORMATION
  Report Type: Spontaneous
  Country: JP (occurrence: JP)
  Receive Date: 20130923
  Receipt Date: 20131125
  Transmission Date: 20140711
  Serious: Yes (Hospitalization)
  Sender: FDA-Public Use
  Company Number: JP-CELGENEUS-087-21880-13091307

PATIENT
  Age: 82 Year
  Sex: Female
  Weight: 45 kg

DRUGS (18)
  1. REVLIMID [Suspect]
     Indication: PLASMA CELL MYELOMA
     Dosage: 10 MILLIGRAM
     Route: 048
     Dates: start: 20130808, end: 20130820
  2. LENADEX [Suspect]
     Indication: PLASMA CELL MYELOMA
     Route: 048
     Dates: start: 20130808, end: 20130820
  3. ZOMETA [Suspect]
     Indication: PLASMA CELL MYELOMA
     Dosage: 4 MILLIGRAM
     Route: 041
     Dates: start: 20130618, end: 20130618
  4. ZOMETA [Suspect]
     Dosage: 4 MILLIGRAM
     Route: 041
     Dates: start: 20130723, end: 20130723
  5. ZOMETA [Suspect]
     Dosage: 4 MILLIGRAM
     Route: 041
     Dates: start: 20130814, end: 20130814
  6. DIOVAN [Concomitant]
     Indication: HYPERTENSION
     Dosage: 80 MILLIGRAM
     Route: 048
     Dates: end: 20130822
  7. AMLODIN [Concomitant]
     Indication: HYPERTENSION
     Dosage: 5 MILLIGRAM
     Route: 048
     Dates: end: 20130822
  8. ATELEC [Concomitant]
     Indication: HYPERTENSION
     Dosage: 10 MILLIGRAM
     Route: 048
     Dates: end: 20130822
  9. PANALDINE [Concomitant]
     Indication: PRODUCT USED FOR UNKNOWN INDICATION
     Dosage: 100 MILLIGRAM
     Route: 048
     Dates: end: 20130822
  10. LIVALO [Concomitant]
     Indication: HYPERLIPIDAEMIA
     Dosage: 2 MILLIGRAM
     Route: 048
     Dates: end: 20130822
  11. JUVELA N [Concomitant]
     Indication: HYPERLIPIDAEMIA
     Dosage: 400 MILLIGRAM
     Route: 048
     Dates: end: 20130822
  12. BUP-4 [Concomitant]
     Indication: HYPERTONIC BLADDER
     Dosage: 20 MILLIGRAM
     Route: 048
     Dates: end: 20130822
  13. PARIET [Concomitant]
     Indication: GASTROOESOPHAGEAL REFLUX DISEASE
     Dosage: 10 MILLIGRAM
     Route: 048
     Dates: end: 20130822
  14. MAGMITT [Concomitant]
     Indication: CONSTIPATION
     Dosage: 500 MILLIGRAM
     Route: 048
     Dates: end: 20130822
  15. ZOVIRAX [Concomitant]
     Indication: HERPES ZOSTER
     Dosage: 200 MILLIGRAM
     Route: 048
     Dates: end: 20130822
  16. CELECOX [Concomitant]
     Indication: BACK PAIN
     Dosage: 200 MILLIGRAM
     Route: 048
     Dates: end: 20130822
  17. MUCOSTA [Concomitant]
     Indication: PROPHYLAXIS
     Dosage: 200 MILLIGRAM
     Route: 048
     Dates: end: 20130822
  18. CONCENTRATED RED CELLS [Concomitant]
     Indication: PRODUCT USED FOR UNKNOWN INDICATION
     Dosage: 2 UNITS
     Route: 041
     Dates: start: 20130814, end: 20130814

REACTIONS (3)
  - C-reactive protein increased [Recovered/Resolved]
  - Renal failure acute [Recovering/Resolving]
  - Nasopharyngitis [Recovering/Resolving]
